FAERS Safety Report 8181600-2 (Version None)
Quarter: 2012Q1

REPORT INFORMATION
  Report Type: 
  Country: None (occurrence: None)
  Receive Date: 20120301
  Receipt Date: 20120301
  Transmission Date: 20120608
  Serious: Yes (Hospitalization)
  Sender: FDA-Public Use
  Company Number: None

PATIENT
  Sex: Female
  Weight: 47.9 kg

DRUGS (1)
  1. CETUXIMAB (ERBITUX) 395 MG [Suspect]

REACTIONS (4)
  - HYPERGLYCAEMIA [None]
  - HYPOALBUMINAEMIA [None]
  - RENAL FAILURE [None]
  - FATIGUE [None]
